FAERS Safety Report 23219783 (Version 1)
Quarter: 2023Q4

REPORT INFORMATION
  Report Type: Other
  Country: US (occurrence: None)
  Receive Date: 20231122
  Receipt Date: 20231122
  Transmission Date: 20240109
  Serious: Yes (Other)
  Sender: FDA-Public Use
  Company Number: US-ROCHE-3457850

PATIENT
  Age: 61 Year
  Sex: Female
  Weight: 134.84 kg

DRUGS (10)
  1. OCREVUS [Suspect]
     Active Substance: OCRELIZUMAB
     Indication: Relapsing multiple sclerosis
     Dosage: INITIAL DOSE 300MG VIAL (1), AND 300MG 2 VIALS (2=600MG), DATE OF TREATMENT : 06/NOV/2023, 30/OCT/20
     Route: 042
     Dates: start: 202204
  2. XIIDRA [Suspect]
     Active Substance: LIFITEGRAST
     Indication: Dry eye
     Route: 065
     Dates: start: 2023
  3. EPIPEN [Concomitant]
     Active Substance: EPINEPHRINE
     Indication: Hypersensitivity
  4. ROSUVASTATIN [Concomitant]
     Active Substance: ROSUVASTATIN
     Indication: Diabetes mellitus
  5. LOVAZA [Concomitant]
     Active Substance: OMEGA-3-ACID ETHYL ESTERS
  6. METRONIDAZOLE [Concomitant]
     Active Substance: METRONIDAZOLE
     Indication: Rosacea
  7. VICTOZA [Concomitant]
     Active Substance: LIRAGLUTIDE
     Indication: Diabetes mellitus
  8. FENOFIBRATE [Concomitant]
     Active Substance: FENOFIBRATE
  9. RHOFADE [Concomitant]
     Active Substance: OXYMETAZOLINE HYDROCHLORIDE
     Indication: Rosacea
  10. LISINOPRIL [Concomitant]
     Active Substance: LISINOPRIL
     Indication: Hypertension

REACTIONS (11)
  - Angioedema [Recovered/Resolved]
  - Salmonellosis [Recovered/Resolved]
  - Diarrhoea [Recovered/Resolved]
  - Pyrexia [Recovered/Resolved]
  - Nausea [Recovered/Resolved]
  - Headache [Unknown]
  - Fatigue [Unknown]
  - Weight decreased [Recovered/Resolved]
  - Intervertebral disc protrusion [Recovering/Resolving]
  - Burning sensation [Unknown]
  - Thyroid cyst [Not Recovered/Not Resolved]

NARRATIVE: CASE EVENT DATE: 20220801
